FAERS Safety Report 21290314 (Version 1)
Quarter: 2022Q3

REPORT INFORMATION
  Report Type: Spontaneous
  Country: FR (occurrence: FR)
  Receive Date: 20220902
  Receipt Date: 20220902
  Transmission Date: 20221026
  Serious: Yes (Other)
  Sender: FDA-Public Use
  Company Number: None

PATIENT
  Age: 14 Year
  Sex: Female

DRUGS (3)
  1. LYRICA [Suspect]
     Active Substance: PREGABALIN
     Dosage: DOSE NOT SPECIFIED, 1 CAPSULE/DAY
     Route: 048
  2. RIVOTRIL [Suspect]
     Active Substance: CLONAZEPAM
     Dosage: DOSE NOT SPECIFIED, OCCASIONAL CONSUMPTION
     Route: 048
  3. COCAINE [Suspect]
     Active Substance: COCAINE
     Dosage: DOSE NOT SPECIFIED, OCCASIONAL CONSUMPTION WITHOUT FREQUENCY
     Route: 045

REACTIONS (2)
  - Altered state of consciousness [Recovered/Resolved]
  - Drug abuse [Unknown]

NARRATIVE: CASE EVENT DATE: 20220701
